FAERS Safety Report 8033069-6 (Version None)
Quarter: 2011Q4

REPORT INFORMATION
  Report Type: 
  Country: None (occurrence: None)
  Receive Date: 20111223
  Receipt Date: 20111213
  Transmission Date: 20120403
  Serious: Yes (Hospitalization)
  Sender: FDA-Public Use
  Company Number: 2011SP048903

PATIENT
  Age: 54 Year
  Sex: Female

DRUGS (17)
  1. CYMBALTA [Concomitant]
  2. PEG-INTRON [Suspect]
     Indication: HEPATITIS C
     Dates: start: 20091101, end: 20100201
  3. PEG-INTRON [Suspect]
     Indication: HEPATITIS C
     Dates: start: 20110919
  4. FOLIC ACID [Concomitant]
  5. OXYCODONE HCL [Concomitant]
  6. TRAZODONE HCL [Concomitant]
  7. THYROID [Concomitant]
  8. METHADONE HCL [Concomitant]
  9. RIBAVIRIN [Suspect]
     Indication: HEPATITIS
     Dosage: 800 MG;
     Dates: end: 20100328
  10. RIBAVIRIN [Suspect]
     Indication: HEPATITIS
     Dosage: 800 MG;
     Dates: start: 20110919
  11. RIBAVIRIN [Suspect]
     Indication: HEPATITIS
     Dosage: 800 MG;
     Dates: start: 20091101, end: 20100301
  12. TEGRETOL [Concomitant]
  13. CELEBREX [Concomitant]
  14. PEGASYS [Suspect]
     Indication: HEPATITIS C
     Dosage: 180 MCG
     Dates: end: 20100328
  15. LEXAPRO [Concomitant]
  16. LEVOTHYROXINE SODIUM [Concomitant]
  17. HYDROCODONE BITARTRATE [Concomitant]

REACTIONS (15)
  - TREATMENT NONCOMPLIANCE [None]
  - BACK PAIN [None]
  - ASTHENIA [None]
  - RASH [None]
  - HEPATIC FIBROSIS [None]
  - HEPATIC STEATOSIS [None]
  - HEMIPLEGIA [None]
  - GRAND MAL CONVULSION [None]
  - DEEP VEIN THROMBOSIS [None]
  - BLOOD PRESSURE SYSTOLIC INCREASED [None]
  - HAEMATOCRIT DECREASED [None]
  - WEIGHT FLUCTUATION [None]
  - SCRATCH [None]
  - WHITE BLOOD CELL COUNT DECREASED [None]
  - DRY SKIN [None]
